FAERS Safety Report 9981039 (Version 6)
Quarter: 2015Q2

REPORT INFORMATION
  Report Type: Spontaneous
  Country: US (occurrence: US)
  Receive Date: 20140307
  Receipt Date: 20150430
  Transmission Date: 20150821
  Serious: Yes (Death, Hospitalization, Other)
  Sender: FDA-Public Use
  Company Number: US-MERCK-1403USA002660

PATIENT
  Sex: Male
  Weight: 148.75 kg

DRUGS (3)
  1. JANUVIA [Suspect]
     Active Substance: SITAGLIPTIN PHOSPHATE
     Indication: TYPE 2 DIABETES MELLITUS
     Dosage: 100 MG, QD
     Route: 048
     Dates: start: 20091006, end: 20110105
  2. BYETTA [Suspect]
     Active Substance: EXENATIDE
     Indication: TYPE 2 DIABETES MELLITUS
     Dosage: UNK, BID
     Dates: start: 20060322, end: 20081104
  3. VICTOZA [Suspect]
     Active Substance: LIRAGLUTIDE
     Indication: TYPE 2 DIABETES MELLITUS
     Dosage: 18MG/3ML, QW
     Dates: start: 20120209, end: 201301

REACTIONS (33)
  - Pancreatic carcinoma [Unknown]
  - Pancreatitis acute [Unknown]
  - Ventricular internal diameter abnormal [Unknown]
  - QRS axis abnormal [Unknown]
  - Chronic obstructive pulmonary disease [Not Recovered/Not Resolved]
  - Splenic rupture [Unknown]
  - Myocardial infarction [Unknown]
  - Renal failure [Unknown]
  - Electrocardiogram ST-T change [Unknown]
  - Neck surgery [Unknown]
  - Hyperlipidaemia [Unknown]
  - Coronary arterial stent insertion [Unknown]
  - Peripheral vascular disorder [Unknown]
  - Pulmonary hypertension [Unknown]
  - Hypotension [Unknown]
  - Myelodysplastic syndrome [Unknown]
  - Acute kidney injury [Recovering/Resolving]
  - Left atrial dilatation [Unknown]
  - Hypertension [Unknown]
  - Anaemia [Unknown]
  - Fall [Unknown]
  - Thrombocytopenia [Unknown]
  - Cardiac pacemaker insertion [Unknown]
  - Ventricular hypokinesia [Unknown]
  - Electrocardiogram Q waves [Unknown]
  - Abnormal loss of weight [Unknown]
  - Drug ineffective [Unknown]
  - Gastrointestinal cancer metastatic [Fatal]
  - Nephrolithiasis [Recovered/Resolved]
  - Cardiac failure congestive [Unknown]
  - Immune thrombocytopenic purpura [Unknown]
  - Chronic kidney disease [Not Recovered/Not Resolved]
  - Mitral valve incompetence [Unknown]

NARRATIVE: CASE EVENT DATE: 2010
